FAERS Safety Report 10072468 (Version 2)
Quarter: 2014Q2

REPORT INFORMATION
  Report Type: Spontaneous
  Country: US (occurrence: US)
  Receive Date: 20140411
  Receipt Date: 20140623
  Transmission Date: 20141212
  Serious: Yes (Other)
  Sender: FDA-Public Use
  Company Number: GXBR2014US001044

PATIENT
  Age: 69 Year
  Sex: Female
  Weight: 51.7 kg

DRUGS (18)
  1. ISONIAZID TABLETS USP [Suspect]
     Indication: MYCOBACTERIUM AVIUM COMPLEX INFECTION
     Dosage: 300 MG, QD
     Route: 048
     Dates: start: 20121026, end: 20130926
  2. ETHAMBUTOL [Suspect]
     Indication: MYCOBACTERIUM AVIUM COMPLEX INFECTION
     Dosage: 400 MG, QD
     Route: 048
     Dates: start: 201210, end: 201302
  3. RIFAMPIN CAPSULES USP [Suspect]
     Indication: MYCOBACTERIUM AVIUM COMPLEX INFECTION
     Dosage: 600 MG, QD
     Route: 048
     Dates: start: 201210, end: 20130926
  4. PYRAZINAMIDE [Suspect]
     Indication: MYCOBACTERIUM AVIUM COMPLEX INFECTION
     Dosage: 750 MG, UNK
     Dates: start: 201210, end: 20130926
  5. CRESTOR [Concomitant]
     Indication: BLOOD CHOLESTEROL INCREASED
     Dosage: UNK MG, UNK
     Route: 048
  6. LISINOPRIL [Concomitant]
     Indication: HYPERTENSION
     Dosage: UNK MG, UNK
     Route: 048
  7. CLONAZEPAM [Concomitant]
     Indication: PANIC ATTACK
     Dosage: UNK MG, UNK
     Route: 048
  8. CLONAZEPAM [Concomitant]
     Indication: ANXIETY
  9. MONTELUKAST [Concomitant]
     Indication: SINUS DISORDER
     Dosage: UNK MG, UNK
     Route: 048
  10. SYMBICORT [Concomitant]
     Indication: CHRONIC OBSTRUCTIVE PULMONARY DISEASE
     Dosage: UNK DF, UNK
     Route: 055
  11. SYMBICORT [Concomitant]
     Indication: EMPHYSEMA
  12. PROAIR (SALBUTAMOL SULFATE) [Concomitant]
     Indication: CHRONIC OBSTRUCTIVE PULMONARY DISEASE
     Dosage: UNK DF, UNK
     Route: 055
  13. PROAIR (SALBUTAMOL SULFATE) [Concomitant]
     Indication: EMPHYSEMA
  14. ALBUTEROL [Concomitant]
     Indication: CHRONIC OBSTRUCTIVE PULMONARY DISEASE
     Dosage: UNK DF, UNK
     Route: 055
  15. ALBUTEROL [Concomitant]
     Indication: EMPHYSEMA
  16. ALBUTEROL [Concomitant]
     Indication: ASTHMA
  17. OXYGEN [Concomitant]
     Indication: CHRONIC OBSTRUCTIVE PULMONARY DISEASE
     Dosage: UNK DF, AT NIGHT
  18. OXYGEN [Concomitant]
     Indication: EMPHYSEMA

REACTIONS (5)
  - Optic nerve disorder [Not Recovered/Not Resolved]
  - Visual impairment [Not Recovered/Not Resolved]
  - Visual acuity reduced [Recovering/Resolving]
  - Cataract [Unknown]
  - Colour blindness [Recovering/Resolving]
